FAERS Safety Report 8359943-9 (Version None)
Quarter: 2012Q2

REPORT INFORMATION
  Report Type: 
  Country: None (occurrence: None)
  Receive Date: 20120515
  Receipt Date: 20120510
  Transmission Date: 20120825
  Serious: Yes (Hospitalization, Other)
  Sender: FDA-Public Use
  Company Number: PHHY2012DE027619

PATIENT
  Sex: Male
  Weight: 75 kg

DRUGS (6)
  1. ZOMETA [Suspect]
     Dosage: 4 MG, 4 WEEKLY
     Route: 042
     Dates: start: 20120223, end: 20120301
  2. AVASTIN [Concomitant]
     Indication: NON-SMALL CELL LUNG CANCER METASTATIC
     Dosage: 1000 U, UNK
     Route: 042
     Dates: start: 20110830, end: 20120315
  3. CARBOPLATIN [Concomitant]
     Indication: NON-SMALL CELL LUNG CANCER METASTATIC
     Dosage: UNK UKN, UNK
     Dates: start: 20110401, end: 20111027
  4. ZOMETA [Suspect]
     Indication: METASTASES TO BONE
     Dosage: 4 MG, 4 WEEKLY
     Route: 042
     Dates: start: 20110401
  5. PACLITAXEL [Concomitant]
     Indication: NON-SMALL CELL LUNG CANCER METASTATIC
     Dosage: UNK UKN, UNK
     Dates: start: 20110401, end: 20110801
  6. DOCETAXEL [Concomitant]
     Indication: NON-SMALL CELL LUNG CANCER METASTATIC
     Dosage: UNK UKN, UNK
     Dates: start: 20110801, end: 20111027

REACTIONS (4)
  - CALCIFICATION METASTATIC [None]
  - OSTEONECROSIS OF JAW [None]
  - OSTEOSCLEROSIS [None]
  - OSTEOMYELITIS [None]
